FAERS Safety Report 16203551 (Version 1)
Quarter: 2019Q2

REPORT INFORMATION
  Report Type: Spontaneous
  Country: BR (occurrence: BR)
  Receive Date: 20190416
  Receipt Date: 20190416
  Transmission Date: 20190711
  Serious: Yes (Other)
  Sender: FDA-Public Use
  Company Number: BR-NODEN PHARMA DAC-NOD-2019-000053

PATIENT
  Age: 24 Year
  Sex: Male
  Weight: 70 kg

DRUGS (3)
  1. RASILEZ [Suspect]
     Active Substance: ALISKIREN
     Indication: BLOOD PRESSURE INCREASED
     Dosage: 1 DOSAGE FORM, QD (IN MORNING)
     Route: 048
     Dates: end: 20190406
  2. RASILEZ [Suspect]
     Active Substance: ALISKIREN
     Indication: RENIN ABNORMAL
  3. RASILEZ [Suspect]
     Active Substance: ALISKIREN
     Indication: CARDIOVASCULAR DISORDER

REACTIONS (2)
  - Drug dependence [Not Recovered/Not Resolved]
  - Hypertension [Not Recovered/Not Resolved]

NARRATIVE: CASE EVENT DATE: 20180406
